FAERS Safety Report 17387786 (Version 2)
Quarter: 2022Q2

REPORT INFORMATION
  Report Type: Spontaneous
  Country: US (occurrence: US)
  Receive Date: 20200206
  Receipt Date: 20220526
  Transmission Date: 20220721
  Serious: No
  Sender: FDA-Public Use
  Company Number: US-RADIUS HEALTH INC.-2019US004929

PATIENT
  Age: 71 Year
  Sex: Female
  Weight: 33.107 kg

DRUGS (5)
  1. TYMLOS [Suspect]
     Active Substance: ABALOPARATIDE
     Indication: Osteoporosis postmenopausal
     Dosage: 80 MCG, QD
     Route: 058
     Dates: start: 20191229, end: 20191229
  2. TYMLOS [Suspect]
     Active Substance: ABALOPARATIDE
     Indication: Osteoporosis
     Dosage: 80 MCG, QD
     Route: 058
     Dates: start: 20210820
  3. TYMLOS [Suspect]
     Active Substance: ABALOPARATIDE
     Dosage: 40 MCG, QOD
     Route: 058
     Dates: start: 20210901
  4. TYMLOS [Suspect]
     Active Substance: ABALOPARATIDE
     Dosage: 60 MCG QOD
     Route: 058
  5. TYMLOS [Suspect]
     Active Substance: ABALOPARATIDE
     Dosage: 70 MCG QOD
     Route: 058
     Dates: end: 20211211

REACTIONS (23)
  - Neck pain [Recovering/Resolving]
  - Gait disturbance [Recovering/Resolving]
  - Spinal pain [Recovered/Resolved]
  - Mobility decreased [Recovering/Resolving]
  - Tooth disorder [Recovering/Resolving]
  - Weight increased [Not Recovered/Not Resolved]
  - Weight loss poor [Unknown]
  - Blood creatinine increased [Unknown]
  - C-telopeptide increased [Unknown]
  - Glomerular filtration rate decreased [Unknown]
  - Blood urea increased [Unknown]
  - Intentional product misuse [Unknown]
  - Insomnia [Recovering/Resolving]
  - Back pain [Recovering/Resolving]
  - Headache [Recovering/Resolving]
  - Abdominal pain [Recovering/Resolving]
  - Nausea [Recovering/Resolving]
  - Bone pain [Recovering/Resolving]
  - Heart rate increased [Recovering/Resolving]
  - Dizziness [Recovering/Resolving]
  - Malaise [Recovering/Resolving]
  - Blood calcium increased [Recovered/Resolved]
  - Product dose omission issue [Unknown]

NARRATIVE: CASE EVENT DATE: 20191229
